FAERS Safety Report 14285160 (Version 2)
Quarter: 2017Q4

REPORT INFORMATION
  Report Type: Spontaneous
  Country: US (occurrence: US)
  Receive Date: 20171214
  Receipt Date: 20171218
  Transmission Date: 20180321
  Serious: Yes (Other)
  Sender: FDA-Public Use
  Company Number: US-PFIZER INC-2017525331

PATIENT
  Age: 33 Year
  Sex: Female

DRUGS (10)
  1. MITOXANTRONE HCL [Suspect]
     Active Substance: MITOXANTRONE HYDROCHLORIDE
     Dosage: 20 MG, EVERY 3 WEEKS (12 MG/M2)
     Route: 042
     Dates: start: 19810910
  2. MITOXANTRONE HCL [Suspect]
     Active Substance: MITOXANTRONE HYDROCHLORIDE
     Dosage: 10 MG/M2, UNK
     Route: 042
     Dates: start: 19820311, end: 19820701
  3. MITOXANTRONE HCL [Suspect]
     Active Substance: MITOXANTRONE HYDROCHLORIDE
     Dosage: 20 MG, EVERY 3 WEEKS (12 MG/M2, CUMULATIVE DOSE 60MG/M^2= 100 MG)
     Route: 042
     Dates: start: 19811029, end: 19811119
  4. MITOXANTRONE HCL [Suspect]
     Active Substance: MITOXANTRONE HYDROCHLORIDE
     Dosage: 20 MG, EVERY 3 WEEKS (12 MG/M2)
     Route: 042
     Dates: start: 19810820
  5. MITOXANTRONE HCL [Suspect]
     Active Substance: MITOXANTRONE HYDROCHLORIDE
     Dosage: 20 MG, EVERY 3 WEEKS (12 MG/M2)
     Route: 042
     Dates: start: 19811203
  6. MITOXANTRONE HCL [Suspect]
     Active Substance: MITOXANTRONE HYDROCHLORIDE
     Dosage: 10 MG/M2, UNK
     Route: 042
     Dates: start: 19811229
  7. MITOXANTRONE HCL [Suspect]
     Active Substance: MITOXANTRONE HYDROCHLORIDE
     Dosage: 10 MG/M2, UNK
     Route: 042
     Dates: start: 19820128
  8. MITOXANTRONE HCL [Suspect]
     Active Substance: MITOXANTRONE HYDROCHLORIDE
     Dosage: 20 MG, EVERY 3 WEEKS (12 MG/M2)
     Route: 042
     Dates: start: 19810730
  9. MITOXANTRONE HCL [Suspect]
     Active Substance: MITOXANTRONE HYDROCHLORIDE
     Indication: ADENOID CYSTIC CARCINOMA
     Dosage: 20 MG, EVERY 3 WEEKS (12 MG/M2)
     Route: 042
     Dates: start: 19810604
  10. MITOXANTRONE HCL [Suspect]
     Active Substance: MITOXANTRONE HYDROCHLORIDE
     Dosage: 20 MG, EVERY 3 WEEKS (12 MG/M2)
     Route: 042
     Dates: start: 19811008

REACTIONS (3)
  - Granulocytopenia [Unknown]
  - Ovarian failure [Unknown]
  - Amenorrhoea [Unknown]
